FAERS Safety Report 5764860-4 (Version None)
Quarter: 2008Q2

REPORT INFORMATION
  Report Type: 
  Country: None (occurrence: None)
  Receive Date: 20080611
  Receipt Date: 20080527
  Transmission Date: 20081010
  Serious: Yes (Other)
  Sender: FDA-Public Use
  Company Number: GB-ELI_LILLY_AND_COMPANY-GB200805005577

PATIENT
  Age: 50 Year
  Sex: Male

DRUGS (10)
  1. HUMALOG [Suspect]
     Dosage: UNK, UNKNOWN
     Route: 065
  2. LANTUS [Concomitant]
     Dosage: UNK, 2/D
     Route: 058
  3. ACOMPLIA [Concomitant]
     Indication: WEIGHT DECREASED
     Dosage: 20 MG, UNKNOWN
     Route: 065
     Dates: start: 20060929
  4. IRBESARTAN [Concomitant]
     Dosage: 40 MG, UNKNOWN
     Route: 065
  5. AVANDIA [Concomitant]
     Dosage: 4 MG, UNKNOWN
     Route: 065
  6. GLUCOPHAGE [Concomitant]
     Dosage: 1 G, UNKNOWN
     Route: 065
  7. INDAPAMIDE [Concomitant]
     Dosage: UNK, UNKNOWN
     Route: 065
  8. LIPITOR [Concomitant]
     Dosage: UNK, UNKNOWN
     Route: 065
  9. METFORMIN HCL [Concomitant]
     Dosage: 1 G, UNKNOWN
     Route: 065
  10. XENICAL [Concomitant]
     Dosage: 40 MG, UNKNOWN
     Route: 065

REACTIONS (4)
  - DIZZINESS [None]
  - HYPOGLYCAEMIA [None]
  - MOOD ALTERED [None]
  - NAUSEA [None]
